FAERS Safety Report 8242854-7 (Version None)
Quarter: 2012Q1

REPORT INFORMATION
  Report Type: 
  Country: None (occurrence: None)
  Receive Date: 20120329
  Receipt Date: 20120320
  Transmission Date: 20120608
  Serious: Yes (Hospitalization)
  Sender: FDA-Public Use
  Company Number: AU-JNJFOC-20120310819

PATIENT
  Sex: Female
  Weight: 61 kg

DRUGS (5)
  1. RISPERDAL [Suspect]
     Indication: BIPOLAR I DISORDER
     Route: 065
     Dates: start: 20091224, end: 20101106
  2. IMURAN [Concomitant]
     Indication: PRODUCT USED FOR UNKNOWN INDICATION
     Route: 065
  3. SEROQUEL [Concomitant]
     Indication: AFFECTIVE DISORDER
     Route: 065
  4. VALIUM [Concomitant]
     Indication: PRODUCT USED FOR UNKNOWN INDICATION
     Route: 065
  5. PRISTIQ [Concomitant]
     Indication: AFFECTIVE DISORDER
     Route: 065

REACTIONS (5)
  - WEIGHT INCREASED [None]
  - JOINT SWELLING [None]
  - OEDEMA PERIPHERAL [None]
  - SWELLING [None]
  - ABDOMINAL DISTENSION [None]
